FAERS Safety Report 11851838 (Version 1)
Quarter: 2015Q4

REPORT INFORMATION
  Report Type: Spontaneous
  Country: US (occurrence: US)
  Receive Date: 20151218
  Receipt Date: 20151218
  Transmission Date: 20160305
  Serious: Yes (Other)
  Sender: FDA-Public Use
  Company Number: US-BRISTOL-MYERS SQUIBB COMPANY-BMS-2015-085918

PATIENT
  Sex: Female
  Weight: 104.3 kg

DRUGS (5)
  1. LISINOPRIL. [Concomitant]
     Active Substance: LISINOPRIL
     Indication: BLOOD PRESSURE MEASUREMENT
     Dosage: 5 MG, QD
     Route: 048
  2. COUMADIN [Suspect]
     Active Substance: WARFARIN SODIUM
     Indication: PERIPHERAL VASCULAR DISORDER
     Dosage: 4 MG, QD
     Route: 048
  3. OXYGEN. [Concomitant]
     Active Substance: OXYGEN
     Indication: PRODUCT USED FOR UNKNOWN INDICATION
     Dosage: UNK
     Route: 065
  4. REVATIO [Suspect]
     Active Substance: SILDENAFIL CITRATE
     Indication: PULMONARY HYPERTENSION
     Dosage: 20 MG, TID
     Route: 048
     Dates: start: 2009
  5. METOPROLOL [Concomitant]
     Active Substance: METOPROLOL
     Indication: PRODUCT USED FOR UNKNOWN INDICATION
     Dosage: UNK
     Route: 065

REACTIONS (5)
  - Cataract operation [Recovered/Resolved]
  - Cataract [Recovered/Resolved]
  - Eye haemorrhage [Recovered/Resolved]
  - Laser therapy [Unknown]
  - Blindness unilateral [Not Recovered/Not Resolved]

NARRATIVE: CASE EVENT DATE: 2009
